FAERS Safety Report 14553230 (Version 2)
Quarter: 2018Q1

REPORT INFORMATION
  Report Type: Spontaneous
  Country: IN (occurrence: IN)
  Receive Date: 20180220
  Receipt Date: 20180308
  Transmission Date: 20180509
  Serious: Yes (Life-Threatening, Hospitalization)
  Sender: FDA-Public Use
  Company Number: IN-PFIZER INC-2018069051

PATIENT
  Age: 55 Year
  Sex: Male

DRUGS (7)
  1. RIFAMPICIN [Concomitant]
     Active Substance: RIFAMPIN
     Indication: SINUSITIS FUNGAL
     Dosage: UNK
  2. AMPHOTERICIN B. [Concomitant]
     Active Substance: AMPHOTERICIN B
     Indication: FUNGAL INFECTION
     Dosage: UNK
     Route: 042
  3. ETHAMBUTOL [Concomitant]
     Active Substance: ETHAMBUTOL HYDROCHLORIDE
     Indication: SINUSITIS FUNGAL
     Dosage: UNK
  4. ISONIAZID. [Concomitant]
     Active Substance: ISONIAZID
     Indication: SINUSITIS FUNGAL
     Dosage: UNK
  5. PYRAZINAMIDE. [Concomitant]
     Active Substance: PYRAZINAMIDE
     Indication: SINUSITIS FUNGAL
     Dosage: UNK
  6. VORICONAZOLE. [Suspect]
     Active Substance: VORICONAZOLE
     Indication: SINUSITIS FUNGAL
     Dosage: UNK
     Route: 048
  7. VORICONAZOLE. [Suspect]
     Active Substance: VORICONAZOLE
     Dosage: UNK
     Route: 042

REACTIONS (1)
  - Mucormycosis [Recovering/Resolving]
